FAERS Safety Report 11667019 (Version 3)
Quarter: 2016Q3

REPORT INFORMATION
  Report Type: Report from Study
  Country: JP (occurrence: JP)
  Receive Date: 20151027
  Receipt Date: 20160721
  Transmission Date: 20161109
  Serious: Yes (Other)
  Sender: FDA-Public Use
  Company Number: JP-ASTELLAS-2009JP004097

PATIENT
  Age: 40 Year
  Sex: Female

DRUGS (61)
  1. COCARL [Concomitant]
     Active Substance: ACETAMINOPHEN
     Indication: UPPER RESPIRATORY TRACT INFLAMMATION
     Route: 048
     Dates: start: 20090122, end: 20090131
  2. RESTAMIN [Concomitant]
     Active Substance: DIPHENHYDRAMINE
     Indication: SEBORRHOEIC DERMATITIS
     Dosage: UNK UNK, UNKNOWN FREQ.
     Route: 061
     Dates: start: 20100201, end: 20100222
  3. ALLEGRA [Concomitant]
     Active Substance: FEXOFENADINE HYDROCHLORIDE
     Route: 048
     Dates: start: 20130408, end: 20140818
  4. LOXONIN [Concomitant]
     Active Substance: LOXOPROFEN SODIUM
     Indication: HEADACHE
     Route: 048
     Dates: start: 20120605, end: 20140707
  5. PLETAAL [Concomitant]
     Active Substance: CILOSTAZOL
     Indication: RAYNAUD^S PHENOMENON
     Route: 048
     Dates: start: 20121030, end: 20121113
  6. LYRICA [Concomitant]
     Active Substance: PREGABALIN
     Indication: NEURALGIA
     Route: 048
     Dates: start: 20131101, end: 20140324
  7. OXICONAZOLE NITRATE. [Concomitant]
     Active Substance: OXICONAZOLE NITRATE
     Indication: VAGINAL INFECTION
     Route: 065
     Dates: start: 20150113, end: 20160329
  8. ALFACALCIDOL [Concomitant]
     Active Substance: ALFACALCIDOL
     Indication: PROPHYLAXIS
     Dosage: 0.25 ?G, ONCE DAILY
     Route: 048
     Dates: start: 20150609, end: 20160329
  9. CEFZON [Concomitant]
     Active Substance: CEFDINIR
     Indication: UPPER RESPIRATORY TRACT INFLAMMATION
     Route: 048
     Dates: start: 20090122, end: 20090129
  10. ASTOMIN [Concomitant]
     Active Substance: DIMEMORFAN
     Indication: UPPER RESPIRATORY TRACT INFLAMMATION
     Route: 048
     Dates: start: 20130408, end: 20130415
  11. HYALEIN [Concomitant]
     Active Substance: HYALURONATE SODIUM
     Indication: SJOGREN^S SYNDROME
     Dosage: UNK UNK, UNKNOWN FREQ.
     Route: 047
     Dates: start: 20080812, end: 20101011
  12. LIDOMEX:CREAM [Concomitant]
     Indication: SEBORRHOEIC DERMATITIS
     Dosage: UNK UNK, UNKNOWN FREQ.
     Route: 061
     Dates: start: 20100223, end: 20100816
  13. PATANOL [Concomitant]
     Active Substance: OLOPATADINE HYDROCHLORIDE
     Indication: SEASONAL ALLERGY
     Dosage: UNK UNK, UNKNOWN FREQ.
     Route: 047
     Dates: start: 20090303, end: 20090414
  14. FLUNASE [Concomitant]
     Active Substance: FLUTICASONE PROPIONATE
     Indication: SEASONAL ALLERGY
     Dosage: UNK UNK, UNKNOWN FREQ.
     Route: 045
     Dates: start: 20090303, end: 20090414
  15. FLUMETHOLON [Concomitant]
     Active Substance: FLUOROMETHOLONE
     Indication: DRY EYE
     Dosage: UNK UNK, UNKNOWN FREQ.
     Route: 047
     Dates: start: 20100818, end: 20101011
  16. ALLEGRA [Concomitant]
     Active Substance: FEXOFENADINE HYDROCHLORIDE
     Indication: URTICARIA
     Route: 048
     Dates: start: 20120110, end: 20120220
  17. LOCOID [Concomitant]
     Active Substance: HYDROCORTISONE BUTYRATE
     Indication: URTICARIA
     Dosage: UNK UNK, UNKNOWN FREQ.
     Route: 062
     Dates: start: 20120417, end: 20120604
  18. TRANSAMIN [Concomitant]
     Active Substance: TRANEXAMIC ACID
     Indication: STOMATITIS
     Route: 048
     Dates: start: 20130422, end: 20130606
  19. NOVAMIN                            /00013303/ [Concomitant]
     Indication: NEURALGIA
     Route: 048
     Dates: start: 20130926, end: 20131009
  20. CANDESARTAN                        /01349502/ [Concomitant]
     Active Substance: CANDESARTAN
     Indication: LUPUS NEPHRITIS
     Route: 048
     Dates: start: 20150609, end: 20160329
  21. PREDNISOLONE. [Suspect]
     Active Substance: PREDNISOLONE
     Route: 048
     Dates: start: 20090820, end: 20111128
  22. MUCOSTA [Concomitant]
     Active Substance: REBAMIPIDE
     Indication: PROPHYLAXIS
     Route: 048
     Dates: end: 20141117
  23. BLOPRESS [Concomitant]
     Active Substance: CANDESARTAN CILEXETIL
     Indication: LUPUS NEPHRITIS
     Route: 048
     Dates: end: 20150608
  24. PL [Concomitant]
     Active Substance: ACETAMINOPHEN\CAFFEINE\PROMETHAZINE\SALICYLAMIDE
     Indication: UPPER RESPIRATORY TRACT INFLAMMATION
     Route: 048
     Dates: start: 20090122, end: 20090129
  25. CLARITH [Concomitant]
     Active Substance: CLARITHROMYCIN
     Indication: BRONCHITIS
     Route: 048
     Dates: start: 20070927, end: 20071010
  26. UREPEARL [Concomitant]
     Active Substance: UREA
     Dosage: UNK UNK, UNKNOWN FREQ.
     Route: 061
     Dates: start: 20111129, end: 20140707
  27. ALLEGRA [Concomitant]
     Active Substance: FEXOFENADINE HYDROCHLORIDE
     Route: 048
     Dates: start: 20120221, end: 20130407
  28. PARIET [Concomitant]
     Active Substance: RABEPRAZOLE SODIUM
     Indication: GASTRIC ULCER
     Route: 048
     Dates: start: 20130408, end: 20150112
  29. AZUNOL                             /00620101/ [Concomitant]
     Indication: STOMATITIS
     Dosage: UNK UNK, UNKNOWN FREQ.
     Route: 061
     Dates: start: 20130422, end: 20130606
  30. KEISHIBUKURYOGAN [Concomitant]
     Active Substance: HERBALS
     Indication: DYSMENORRHOEA
     Route: 048
     Dates: start: 20140121, end: 20140526
  31. PREDNISOLONE. [Suspect]
     Active Substance: PREDNISOLONE
     Route: 048
     Dates: start: 20140304, end: 20141117
  32. ALFAROL [Concomitant]
     Active Substance: ALFACALCIDOL
     Indication: PROPHYLAXIS
     Dosage: 0.25 ?G, ONCE DAILY
     Route: 048
     Dates: end: 20150608
  33. CHLOMY [Concomitant]
     Active Substance: CHLORAMPHENICOL
     Indication: VAGINITIS BACTERIAL
     Route: 067
     Dates: start: 20080902, end: 20081111
  34. CLARITH [Concomitant]
     Active Substance: CLARITHROMYCIN
     Route: 048
     Dates: start: 20130408, end: 20130411
  35. AZUNOL                             /00620101/ [Concomitant]
     Indication: PROPHYLAXIS
     Dosage: UNK UNK, UNKNOWN FREQ.
     Route: 061
     Dates: start: 20130507, end: 20160329
  36. AZUNOL                             /00620101/ [Concomitant]
     Indication: STOMATITIS
  37. DEXALTIN [Concomitant]
     Active Substance: DEXAMETHASONE
     Indication: STOMATITIS
     Dosage: UNK UNK, UNKNOWN FREQ.
     Route: 061
     Dates: start: 20130520, end: 20130606
  38. PRECIPITATED CALCIUM CARBONATE [Concomitant]
     Active Substance: CALCIUM CARBONATE
     Indication: HYPOCALCAEMIA
     Route: 048
     Dates: start: 20150609, end: 20160329
  39. PREDNISOLONE. [Suspect]
     Active Substance: PREDNISOLONE
     Route: 048
     Dates: start: 20141118, end: 20160329
  40. FERROMIA [Concomitant]
     Active Substance: FERROUS CITRATE
     Route: 048
     Dates: start: 20071025, end: 20080414
  41. PL [Concomitant]
     Active Substance: ACETAMINOPHEN\CAFFEINE\PROMETHAZINE\SALICYLAMIDE
     Indication: NASOPHARYNGITIS
     Route: 048
     Dates: start: 20110411, end: 20110415
  42. MOHRUS TAPE L [Concomitant]
     Indication: PERIARTHRITIS
     Route: 061
     Dates: start: 20100914, end: 20130218
  43. MOHRUS TAPE L [Concomitant]
     Indication: COSTOCHONDRITIS
     Route: 061
     Dates: start: 20140415, end: 20140818
  44. PREDNISOLONE. [Suspect]
     Active Substance: PREDNISOLONE
     Indication: LUPUS NEPHRITIS
     Route: 048
     Dates: end: 20071012
  45. PREDNISOLONE. [Suspect]
     Active Substance: PREDNISOLONE
     Route: 048
     Dates: start: 20090303, end: 20090819
  46. FERROMIA [Concomitant]
     Active Substance: FERROUS CITRATE
     Indication: PRODUCT USED FOR UNKNOWN INDICATION
     Route: 048
     Dates: start: 20070927, end: 20071010
  47. MUCODYNE [Concomitant]
     Active Substance: CARBOCYSTEINE
     Indication: UPPER RESPIRATORY TRACT INFLAMMATION
     Route: 048
     Dates: start: 20090122, end: 20090129
  48. LIDOMEX:SOL. [Concomitant]
     Indication: SEBORRHOEIC DERMATITIS
     Dosage: UNK UNK, UNKNOWN FREQ.
     Route: 061
     Dates: start: 20100223, end: 20160329
  49. TRAMCET [Concomitant]
     Active Substance: ACETAMINOPHEN\TRAMADOL
     Indication: NEURALGIA
     Route: 048
     Dates: start: 20130926, end: 20131009
  50. PREDNISOLONE. [Suspect]
     Active Substance: PREDNISOLONE
     Route: 048
     Dates: start: 20071013, end: 20080929
  51. OKINAZOLE [Concomitant]
     Indication: VAGINITIS BACTERIAL
     Route: 067
     Dates: start: 20080909, end: 20081111
  52. UREPEARL [Concomitant]
     Active Substance: UREA
     Indication: HYPERKERATOSIS
     Dosage: UNK UNK, UNKNOWN FREQ.
     Route: 061
     Dates: start: 20100323, end: 20110509
  53. NITROPEN [Concomitant]
     Active Substance: NITROGLYCERIN
     Indication: ANGINA PECTORIS
     Dosage: 0.3 MG, ONCE DAILY
     Route: 048
     Dates: start: 20130130, end: 20130213
  54. TACROLIMUS. [Suspect]
     Active Substance: TACROLIMUS
     Indication: LUPUS NEPHRITIS
     Route: 048
     Dates: start: 20070711, end: 20160329
  55. PREDNISOLONE. [Suspect]
     Active Substance: PREDNISOLONE
     Route: 048
     Dates: start: 20080930, end: 20090302
  56. PREDNISOLONE. [Suspect]
     Active Substance: PREDNISOLONE
     Route: 048
     Dates: start: 20111129, end: 20140303
  57. NERISONA [Concomitant]
     Active Substance: DIFLUCORTOLONE VALERATE
     Indication: SEBORRHOEIC DERMATITIS
     Dosage: UNK UNK, UNKNOWN FREQ.
     Route: 061
     Dates: start: 20100201, end: 20100222
  58. VITAMINS NOS [Concomitant]
     Active Substance: VITAMINS
     Indication: RAYNAUD^S PHENOMENON
     Route: 048
     Dates: start: 20121030, end: 20121113
  59. HOKUNALIN                          /00654901/ [Concomitant]
     Active Substance: TULOBUTEROL
     Indication: UPPER RESPIRATORY TRACT INFLAMMATION
     Dosage: 0.5 MG, ONCE DAILY
     Route: 062
     Dates: start: 20130408, end: 20130415
  60. TRAMCET [Concomitant]
     Active Substance: ACETAMINOPHEN\TRAMADOL
     Route: 048
     Dates: start: 20131010, end: 20131031
  61. REBAMIPIDE [Concomitant]
     Active Substance: REBAMIPIDE
     Indication: PROPHYLAXIS
     Route: 048
     Dates: start: 20141118, end: 20160329

REACTIONS (21)
  - Hyperkeratosis [Recovering/Resolving]
  - Urticaria [Recovering/Resolving]
  - Stomatitis [Recovering/Resolving]
  - Neuralgia [Recovering/Resolving]
  - Hypocalcaemia [Recovered/Resolved]
  - Dry eye [Recovering/Resolving]
  - Headache [Recovering/Resolving]
  - Angina pectoris [Recovered/Resolved]
  - Seborrhoeic dermatitis [Recovering/Resolving]
  - Dysmenorrhoea [Recovering/Resolving]
  - Vaginitis bacterial [Recovered/Resolved]
  - Bronchitis [Recovered/Resolved]
  - Raynaud^s phenomenon [Recovering/Resolving]
  - Upper respiratory tract inflammation [Recovered/Resolved]
  - Gastric ulcer [Recovering/Resolving]
  - Vaginal infection [Recovering/Resolving]
  - Periarthritis [Recovering/Resolving]
  - Costochondritis [Recovering/Resolving]
  - Seasonal allergy [Recovering/Resolving]
  - Dermatitis atopic [Recovering/Resolving]
  - Nasopharyngitis [Recovered/Resolved]

NARRATIVE: CASE EVENT DATE: 20070927
